FAERS Safety Report 18592718 (Version 1)
Quarter: 2020Q4

REPORT INFORMATION
  Report Type: Spontaneous
  Country: US (occurrence: US)
  Receive Date: 20201208
  Receipt Date: 20201208
  Transmission Date: 20210114
  Serious: Yes (Death)
  Sender: FDA-Public Use
  Company Number: US-AQUESTIVE THERAPEUTICS, INC.-2020AQU00009

PATIENT

DRUGS (1)
  1. SYMPAZAN [Suspect]
     Active Substance: CLOBAZAM
     Indication: SEIZURE
     Dosage: 5-15 MG, 1X/DAY AT BEDTIME AS NEEDED
     Dates: start: 20200828, end: 2020

REACTIONS (1)
  - Death [Fatal]

NARRATIVE: CASE EVENT DATE: 2020
